FAERS Safety Report 17312769 (Version 1)
Quarter: 2020Q1

REPORT INFORMATION
  Report Type: Spontaneous
  Country: US (occurrence: US)
  Receive Date: 20200123
  Receipt Date: 20200123
  Transmission Date: 20200409
  Serious: Yes (Other)
  Sender: FDA-Public Use
  Company Number: US-AUROBINDO-AUR-APL-2020-003160

PATIENT
  Sex: Female

DRUGS (7)
  1. LITHIUM CARBONATE. [Suspect]
     Active Substance: LITHIUM CARBONATE
     Dosage: 750 MILLIGRAM
     Route: 065
     Dates: start: 201509
  2. NORTRIPTYLINE [Suspect]
     Active Substance: NORTRIPTYLINE
     Dosage: 50 TO 100 MG
     Route: 065
     Dates: end: 201507
  3. LAMOTRIGINE. [Suspect]
     Active Substance: LAMOTRIGINE
     Indication: BIPOLAR II DISORDER
     Dosage: 25 MILLIGRAM
     Route: 065
  4. LITHIUM CARBONATE. [Suspect]
     Active Substance: LITHIUM CARBONATE
     Indication: BIPOLAR II DISORDER
     Dosage: 600 MILLIGRAM
     Route: 065
  5. NORTRIPTYLINE [Suspect]
     Active Substance: NORTRIPTYLINE
     Indication: BIPOLAR II DISORDER
     Dosage: 75 MILLIGRAM AT BEDTIME
     Route: 065
     Dates: start: 201410
  6. DIVALPROEX [Concomitant]
     Active Substance: DIVALPROEX SODIUM
     Indication: BIPOLAR II DISORDER
     Dosage: 500 MILLIGRAM
     Route: 065
     Dates: start: 201509, end: 201605
  7. MAPROTILINE [Concomitant]
     Active Substance: MAPROTILINE
     Indication: BIPOLAR II DISORDER
     Dosage: 12.5 MILLIGRAM IN THE MOMING
     Route: 065

REACTIONS (2)
  - Drug intolerance [Unknown]
  - Bipolar disorder [Recovered/Resolved]
